FAERS Safety Report 12163777 (Version 1)
Quarter: 2016Q1

REPORT INFORMATION
  Report Type: Spontaneous
  Country: US (occurrence: None)
  Receive Date: 20160308
  Receipt Date: 20160308
  Transmission Date: 20160526
  Serious: No
  Sender: FDA-Public Use
  Company Number: None

PATIENT
  Age: 92 Year
  Sex: Male
  Weight: 59.1 kg

DRUGS (1)
  1. WARFARIN [Suspect]
     Active Substance: WARFARIN
     Indication: AORTIC VALVE REPAIR
     Route: 048

REACTIONS (3)
  - Retinal haemorrhage [None]
  - International normalised ratio increased [None]
  - Visual impairment [None]

NARRATIVE: CASE EVENT DATE: 20160211
